FAERS Safety Report 6640208-8 (Version None)
Quarter: 2010Q1

REPORT INFORMATION
  Report Type: 
  Country: None (occurrence: None)
  Receive Date: 20100318
  Receipt Date: 20100311
  Transmission Date: 20100710
  Serious: Yes (Other)
  Sender: FDA-Public Use
  Company Number: US-AMGEN-QUU395212

PATIENT
  Sex: Male
  Weight: 114.9 kg

DRUGS (2)
  1. NPLATE [Suspect]
     Indication: IDIOPATHIC THROMBOCYTOPENIC PURPURA
     Route: 058
     Dates: start: 20091016
  2. PREDNISONE [Suspect]
     Dates: start: 20090601

REACTIONS (2)
  - PLATELET COUNT ABNORMAL [None]
  - PSORIASIS [None]
